FAERS Safety Report 9778493 (Version 2)
Quarter: 2014Q1

REPORT INFORMATION
  Report Type: Spontaneous
  Country: US (occurrence: None)
  Receive Date: 20131219
  Receipt Date: 20140114
  Transmission Date: 20141002
  Serious: Yes (Other)
  Sender: FDA-Public Use
  Company Number: 2013SA129343

PATIENT
  Age: 57 Year
  Sex: Female
  Weight: 68 kg

DRUGS (1)
  1. ICY HOT MEDICATED NO MESS APPLICATOR [Suspect]
     Dosage: ; UNKNOWN; UNKNOWN
     Dates: start: 20131128, end: 20131130

REACTIONS (5)
  - Chemical injury [None]
  - Application site burn [None]
  - Impaired healing [None]
  - Burns second degree [None]
  - Pruritus [None]
